FAERS Safety Report 18202435 (Version 1)
Quarter: 2020Q3

REPORT INFORMATION
  Report Type: Spontaneous
  Country: US (occurrence: US)
  Receive Date: 20200827
  Receipt Date: 20200827
  Transmission Date: 20201103
  Serious: No
  Sender: FDA-Public Use
  Company Number: None

PATIENT
  Age: 64 Year
  Sex: Male

DRUGS (1)
  1. ABRAXANE [Suspect]
     Active Substance: PACLITAXEL
     Indication: PANCREATIC CARCINOMA
     Dosage: OTHER FREQUENCY:OTHER;?
     Route: 042
     Dates: start: 202003, end: 20200827

REACTIONS (1)
  - Disease progression [None]

NARRATIVE: CASE EVENT DATE: 20200827
